FAERS Safety Report 10034301 (Version 1)
Quarter: 2014Q1

REPORT INFORMATION
  Report Type: Spontaneous
  Country: US (occurrence: US)
  Receive Date: 20140325
  Receipt Date: 20140325
  Transmission Date: 20141002
  Serious: No
  Sender: FDA-Public Use
  Company Number: US-BAYER-2014-043903

PATIENT
  Age: 60 Year
  Sex: Male

DRUGS (1)
  1. GADAVIST [Suspect]
     Dosage: 6 ML, ONCE
     Route: 042
     Dates: start: 20140317, end: 20140317

REACTIONS (2)
  - Urticaria [Recovered/Resolved]
  - Sneezing [Recovered/Resolved]
